FAERS Safety Report 5477319-9 (Version None)
Quarter: 2007Q4

REPORT INFORMATION
  Report Type: 
  Country: None (occurrence: None)
  Receive Date: 20071004
  Receipt Date: 20071001
  Transmission Date: 20080405
  Serious: Yes (Other)
  Sender: FDA-Public Use
  Company Number: US-ASTRAZENECA-2007UW22899

PATIENT
  Age: 83 Year
  Sex: Female

DRUGS (2)
  1. ARIMIDEX [Suspect]
     Indication: BREAST CANCER
     Route: 048
     Dates: start: 19980101
  2. ACTONEL [Concomitant]

REACTIONS (4)
  - HYPERTENSION [None]
  - LYMPHOMA [None]
  - OSTEOPOROSIS [None]
  - SWELLING [None]
